FAERS Safety Report 4493932-X (Version None)
Quarter: 2004Q4

REPORT INFORMATION
  Report Type: 
  Country: None (occurrence: None)
  Receive Date: 20041102
  Receipt Date: 20041014
  Transmission Date: 20050328
  Serious: Yes (Other)
  Sender: FDA-Public Use
  Company Number: USA041081228

PATIENT
  Age: 7 Year
  Sex: Male
  Weight: 25 kg

DRUGS (2)
  1. STRATTERA [Suspect]
     Indication: ATTENTION DEFICIT/HYPERACTIVITY DISORDER
     Dosage: 30 MG DAY
     Dates: start: 20030501
  2. CONCERTA [Concomitant]

REACTIONS (7)
  - DERMATITIS EXFOLIATIVE [None]
  - DRUG INEFFECTIVE [None]
  - DRUG INTERACTION [None]
  - FUNGAL INFECTION [None]
  - PSORIASIS [None]
  - RASH ERYTHEMATOUS [None]
  - URTICARIA [None]
